FAERS Safety Report 4837686-3 (Version None)
Quarter: 2005Q4

REPORT INFORMATION
  Report Type: 
  Country: None (occurrence: None)
  Receive Date: 20051024
  Receipt Date: 20050719
  Transmission Date: 20060501
  Serious: No
  Sender: FDA-Public Use
  Company Number: 215988

PATIENT
  Age: 33 Year
  Sex: Female

DRUGS (11)
  1. XOLAIR [Suspect]
     Indication: ASTHMA
     Dosage: 300 MG, 1/MONTH, SUBCUTANEOUS
     Route: 058
     Dates: start: 20041220
  2. XOLAIR [Suspect]
  3. XOLAIR [Suspect]
  4. XOLAIR [Suspect]
  5. ZYRTEC-D 12 HOUR [Concomitant]
  6. ADVAIR DISKUS (SALMETEROL XINAFOATE, FLUTICASONE PROPIONATE) [Concomitant]
  7. HCTZ (HYDROCHLCOROTHIAZIDE) [Concomitant]
  8. SYNTHROID [Concomitant]
  9. SINGULAIR [Concomitant]
  10. NASACORT [Concomitant]
  11. CYTOMEL [Concomitant]

REACTIONS (2)
  - INFLUENZA LIKE ILLNESS [None]
  - VOMITING [None]
